FAERS Safety Report 7496933-2 (Version None)
Quarter: 2011Q2

REPORT INFORMATION
  Report Type: 
  Country: None (occurrence: None)
  Receive Date: 20110523
  Receipt Date: 20110512
  Transmission Date: 20111010
  Serious: Yes (Hospitalization, Other)
  Sender: FDA-Public Use
  Company Number: US-MERCK-1104USA00408

PATIENT
  Age: 77 Year
  Sex: Female

DRUGS (9)
  1. TEKTURNA [Concomitant]
     Route: 065
  2. PRINIVIL [Suspect]
     Indication: HYPERTENSION
     Route: 048
  3. LOPRESSOR [Concomitant]
     Route: 048
  4. CADUET [Concomitant]
     Route: 065
  5. MAGNESIUM OXIDE [Concomitant]
     Route: 048
  6. CALCIUM (UNSPECIFIED) [Concomitant]
     Route: 048
  7. LIPITOR [Concomitant]
     Route: 048
  8. COZAAR [Suspect]
     Indication: HYPERTENSION
     Route: 048
     Dates: start: 20101101
  9. METAMUCIL-2 [Concomitant]
     Route: 048

REACTIONS (4)
  - ABDOMINAL PAIN [None]
  - NAUSEA [None]
  - BLOOD PRESSURE INADEQUATELY CONTROLLED [None]
  - DIARRHOEA [None]
